FAERS Safety Report 12820570 (Version 1)
Quarter: 2016Q4

REPORT INFORMATION
  Report Type: Spontaneous
  Country: US (occurrence: US)
  Receive Date: 20161006
  Receipt Date: 20161006
  Transmission Date: 20170207
  Serious: No
  Sender: FDA-Public Use
  Company Number: US-DRREDDYS-DRL/USA/16/0079589

PATIENT
  Sex: Male
  Weight: 73.4 kg

DRUGS (2)
  1. CELEXA [Interacting]
     Active Substance: CITALOPRAM HYDROBROMIDE
     Indication: PRODUCT USED FOR UNKNOWN INDICATION
  2. SUMATRIPTAN SUCCINATE TABLETS [Suspect]
     Active Substance: SUMATRIPTAN SUCCINATE
     Indication: MIGRAINE PROPHYLAXIS
     Dosage: TAKING HALF TABLET ONCE DAILY
     Route: 048

REACTIONS (4)
  - Blood pressure increased [Recovered/Resolved]
  - Drug interaction [Unknown]
  - Product use issue [Unknown]
  - Wrong technique in product usage process [Unknown]
